FAERS Safety Report 5774477-3 (Version None)
Quarter: 2008Q2

REPORT INFORMATION
  Report Type: 
  Country: None (occurrence: None)
  Receive Date: 20080616
  Receipt Date: 20080610
  Transmission Date: 20081010
  Serious: Yes (Other)
  Sender: FDA-Public Use
  Company Number: GB-BOEHRINGER INGELHEIM GMBH, GERMANY-2008-BP-09050RO

PATIENT
  Age: 8 Year
  Sex: Female

DRUGS (4)
  1. FLUTICASONE PROPIONATE [Suspect]
     Indication: COUGH
     Route: 055
  2. FLUTICASONE PROPIONATE [Suspect]
     Indication: RESPIRATORY DISORDER
  3. HYDROCORTISONE REPLACEMENT THERAPY [Concomitant]
     Indication: BLOOD CORTICOTROPHIN DECREASED
  4. PROPHYLACTIC ANTIBIOTICS [Concomitant]
     Indication: BRONCHOMALACIA

REACTIONS (3)
  - BLOOD CORTICOTROPHIN DECREASED [None]
  - BRONCHOMALACIA [None]
  - GROWTH RETARDATION [None]
